FAERS Safety Report 19813701 (Version 1)
Quarter: 2021Q3

REPORT INFORMATION
  Report Type: Spontaneous
  Country: CN (occurrence: CN)
  Receive Date: 20210909
  Receipt Date: 20210909
  Transmission Date: 20211014
  Serious: Yes (Other)
  Sender: FDA-Public Use
  Company Number: CN-SLATE RUN PHARMACEUTICALS-21CN000667

PATIENT

DRUGS (4)
  1. AZITHROMYCIN USP [Suspect]
     Active Substance: AZITHROMYCIN
     Indication: MATERNAL EXPOSURE TIMING UNSPECIFIED
     Dosage: UNK
     Route: 015
  2. OTHER THERAPEUTIC PRODUCTS [Concomitant]
     Active Substance: UNSPECIFIED INGREDIENT
     Indication: MATERNAL EXPOSURE TIMING UNSPECIFIED
     Route: 015
  3. OXYGEN. [Concomitant]
     Active Substance: OXYGEN
     Indication: MATERNAL EXPOSURE TIMING UNSPECIFIED
     Route: 015
  4. ANTIVIRALS [Concomitant]
     Active Substance: UNSPECIFIED INGREDIENT
     Indication: MATERNAL EXPOSURE TIMING UNSPECIFIED
     Route: 015

REACTIONS (2)
  - Foetal heart rate increased [Unknown]
  - Foetal exposure during pregnancy [Recovered/Resolved]
